FAERS Safety Report 7594033-4 (Version None)
Quarter: 2011Q3

REPORT INFORMATION
  Report Type: 
  Country: None (occurrence: None)
  Receive Date: 20110706
  Receipt Date: 20110620
  Transmission Date: 20111222
  Serious: No
  Sender: FDA-Public Use
  Company Number: US-B.I. PHARMACEUTICALS,INC./RIDGEFIELD-2011-BP-09365BP

PATIENT
  Age: 88 Year
  Sex: Female

DRUGS (8)
  1. LEVOTHYROXINE SODIUM [Concomitant]
     Indication: HYPOTHYROIDISM
     Route: 048
  2. PRADAXA [Suspect]
     Indication: ATRIAL FIBRILLATION
  3. PRADAXA [Suspect]
     Indication: CEREBROVASCULAR ACCIDENT PROPHYLAXIS
     Dosage: 300 MG
     Route: 048
     Dates: start: 20110201
  4. ATENOLOL [Concomitant]
     Indication: HYPERTENSION
     Route: 048
  5. MANY MEDICATIONS [Concomitant]
     Indication: CARDIAC FAILURE CONGESTIVE
  6. CALCIUM CARBONATE [Concomitant]
     Route: 048
  7. PACERONE [Concomitant]
     Indication: ATRIAL FIBRILLATION
     Route: 048
  8. FISH OIL [Concomitant]
     Route: 048

REACTIONS (3)
  - INJECTION SITE HAEMORRHAGE [None]
  - DYSPEPSIA [None]
  - CONSTIPATION [None]
